FAERS Safety Report 10189048 (Version 1)
Quarter: 2014Q2

REPORT INFORMATION
  Report Type: Spontaneous
  Country: US (occurrence: US)
  Receive Date: 20140522
  Receipt Date: 20140522
  Transmission Date: 20141212
  Serious: Yes (Death)
  Sender: FDA-Public Use
  Company Number: US-JNJFOC-20140506655

PATIENT
  Age: 65 Year
  Sex: Male
  Weight: 36.29 kg

DRUGS (2)
  1. SANDOZ FENTANYL TRANSDERMAL SYSTEM [Suspect]
     Indication: CANCER PAIN
     Route: 062
  2. MALLINCKRODT FENTANYL PATCHES [Suspect]
     Indication: CANCER PAIN
     Route: 062

REACTIONS (1)
  - Pancreatic carcinoma [Fatal]
